FAERS Safety Report 4945322-0 (Version None)
Quarter: 2006Q1

REPORT INFORMATION
  Report Type: 
  Country: None (occurrence: None)
  Receive Date: 20060315
  Receipt Date: 20060315
  Transmission Date: 20060701
  Serious: No
  Sender: FDA-Public Use
  Company Number: None

PATIENT
  Age: 57 Year
  Sex: Male
  Weight: 81.6475 kg

DRUGS (1)
  1. TAMIFLU [Suspect]
     Indication: INFLUENZA LIKE ILLNESS
     Dosage: 75 MG BID PO
     Route: 048
     Dates: start: 20060310, end: 20060313

REACTIONS (3)
  - CONDITION AGGRAVATED [None]
  - SIMILAR REACTION ON PREVIOUS EXPOSURE TO DRUG [None]
  - TINNITUS [None]
